FAERS Safety Report 8847981 (Version 2)
Quarter: 2015Q1

REPORT INFORMATION
  Report Type: Report from Study
  Country: US (occurrence: US)
  Receive Date: 20121018
  Receipt Date: 20150208
  Transmission Date: 20150721
  Serious: Yes (Other)
  Sender: FDA-Public Use
  Company Number: US-ROCHE-1143326

PATIENT
  Sex: Male
  Weight: 94.89 kg

DRUGS (15)
  1. DEXAMETHASONE. [Concomitant]
     Active Substance: DEXAMETHASONE
     Route: 048
  2. NASALCROM [Concomitant]
     Active Substance: CROMOLYN SODIUM
  3. SYNTHROID [Concomitant]
     Active Substance: LEVOTHYROXINE SODIUM
     Route: 048
  4. DIFLUCAN [Concomitant]
     Active Substance: FLUCONAZOLE
  5. MAXZIDE [Concomitant]
     Active Substance: HYDROCHLOROTHIAZIDE\TRIAMTERENE
     Indication: FLUID RETENTION
  6. LUVOX [Concomitant]
     Active Substance: FLUVOXAMINE MALEATE
     Route: 048
  7. PEPCID AC [Concomitant]
     Active Substance: FAMOTIDINE
  8. ANDRODERM [Concomitant]
     Active Substance: TESTOSTERONE
  9. GARLIC. [Concomitant]
     Active Substance: GARLIC
     Route: 048
  10. NUTROPIN AQ [Suspect]
     Active Substance: SOMATROPIN
     Indication: HYPOPITUITARISM
     Route: 058
     Dates: start: 19980408
  11. VITAMIN E [Concomitant]
     Active Substance: .ALPHA.-TOCOPHEROL
  12. INDERAL LA [Concomitant]
     Active Substance: PROPRANOLOL HYDROCHLORIDE
     Route: 048
  13. LIPITOR [Concomitant]
     Active Substance: ATORVASTATIN CALCIUM
     Route: 048
  14. CLARITIN [Concomitant]
     Active Substance: LORATADINE
  15. TESTODERM [Concomitant]
     Active Substance: TESTOSTERONE
     Route: 061

REACTIONS (12)
  - Upper-airway cough syndrome [Unknown]
  - Oedema peripheral [Unknown]
  - Blood alkaline phosphatase increased [Unknown]
  - Abdominal mass [Unknown]
  - Cough [Unknown]
  - Vision blurred [Unknown]
  - Bronchitis [Unknown]
  - Injection site bruising [Unknown]
  - Hypersensitivity [Unknown]
  - Fluid retention [Unknown]
  - Contusion [Unknown]
  - Injection site haemorrhage [Unknown]
